FAERS Safety Report 7605655-6 (Version None)
Quarter: 2011Q3

REPORT INFORMATION
  Report Type: 
  Country: None (occurrence: None)
  Receive Date: 20110713
  Receipt Date: 20110706
  Transmission Date: 20111222
  Serious: Yes (Other)
  Sender: FDA-Public Use
  Company Number: US-JNJFOC-20110501290

PATIENT
  Sex: Female
  Weight: 58.97 kg

DRUGS (7)
  1. AGGRENOX [Concomitant]
     Indication: BLOOD PRESSURE
     Dosage: 25MG/200MG/TABLET/25MG/200  MG/TWICE A DAY/ORAL
     Route: 048
  2. METHIMAZOLE [Suspect]
     Indication: PRODUCT USED FOR UNKNOWN INDICATION
     Route: 065
  3. TITANIUM DIOXIDE [Suspect]
     Route: 065
  4. LEVAQUIN [Suspect]
     Indication: PRODUCT USED FOR UNKNOWN INDICATION
     Route: 048
     Dates: start: 20101212, end: 20101212
  5. METHIMAZOLE [Suspect]
     Route: 065
  6. TITANIUM DIOXIDE [Suspect]
     Indication: PRODUCT USED FOR UNKNOWN INDICATION
     Route: 065
  7. AMLODIPINE [Concomitant]
     Indication: BLOOD PRESSURE
     Route: 048

REACTIONS (2)
  - ADVERSE EVENT [None]
  - BLOOD URINE PRESENT [None]
